FAERS Safety Report 16223417 (Version 1)
Quarter: 2019Q2

REPORT INFORMATION
  Report Type: Spontaneous
  Country: US (occurrence: US)
  Receive Date: 20190420
  Receipt Date: 20190420
  Transmission Date: 20190711
  Serious: No
  Sender: FDA-Public Use
  Company Number: None

PATIENT
  Age: 49 Year
  Sex: Female
  Weight: 110.25 kg

DRUGS (8)
  1. CELECOXIB. [Concomitant]
     Active Substance: CELECOXIB
  2. MULIT VITAMIN [Concomitant]
  3. VITAMIN B12 [Concomitant]
     Active Substance: CYANOCOBALAMIN
  4. KELP [Concomitant]
     Active Substance: KELP
  5. MAGNESEIUM [Concomitant]
  6. LOSARTAN POTASSIUM 50 MG TAB [Suspect]
     Active Substance: LOSARTAN POTASSIUM
     Indication: CARDIOVASCULAR DISORDER
     Dosage: ?          QUANTITY:1 TABLET(S);?
     Route: 048
     Dates: start: 20190110, end: 20190402
  7. VITAMIN D3 [Concomitant]
     Active Substance: CHOLECALCIFEROL
  8. SELENIUM [Concomitant]
     Active Substance: SELENIUM

REACTIONS (3)
  - Renal pain [None]
  - Back pain [None]
  - Recalled product administered [None]

NARRATIVE: CASE EVENT DATE: 20190110
